FAERS Safety Report 6898203-X (Version None)
Quarter: 2010Q3

REPORT INFORMATION
  Report Type: 
  Country: None (occurrence: None)
  Receive Date: 20100802
  Receipt Date: 20070918
  Transmission Date: 20110219
  Serious: Yes (Other)
  Sender: FDA-Public Use
  Company Number: US-PFIZER INC-2007079321

PATIENT
  Sex: Female
  Weight: 61.2 kg

DRUGS (5)
  1. LYRICA [Suspect]
     Indication: FIBROMYALGIA
     Route: 048
     Dates: start: 20070828
  2. TOPROL-XL [Concomitant]
  3. ALTACE [Concomitant]
  4. SPIRONOLACTONE [Concomitant]
  5. LIPITOR [Concomitant]

REACTIONS (4)
  - DECREASED APPETITE [None]
  - DIZZINESS [None]
  - OEDEMA PERIPHERAL [None]
  - WEIGHT INCREASED [None]
